FAERS Safety Report 9636429 (Version 2)
Quarter: 2014Q1

REPORT INFORMATION
  Report Type: Spontaneous
  Country: US (occurrence: US)
  Receive Date: 20131021
  Receipt Date: 20140317
  Transmission Date: 20141002
  Serious: Yes (Death, Hospitalization)
  Sender: FDA-Public Use
  Company Number: US-B.I. PHARMACEUTICALS,INC./RIDGEFIELD-2013-BI-33479BP

PATIENT
  Age: 64 Year
  Sex: Male
  Weight: 222 kg

DRUGS (3)
  1. PRADAXA [Suspect]
     Indication: ANTICOAGULANT THERAPY
     Route: 065
     Dates: start: 20110412
  2. SUDAFED PE [Concomitant]
     Route: 065
  3. LOW DOSE ASPIRIN [Concomitant]
     Route: 065

REACTIONS (3)
  - Small intestinal haemorrhage [Fatal]
  - Large intestinal haemorrhage [Fatal]
  - Epistaxis [Unknown]
